FAERS Safety Report 18739454 (Version 1)
Quarter: 2021Q1

REPORT INFORMATION
  Report Type: Spontaneous
  Country: US (occurrence: US)
  Receive Date: 20210108
  Receipt Date: 20210108
  Transmission Date: 20210419
  Serious: Yes (Hospitalization, Disabling)
  Sender: FDA-Public Use
  Company Number: None

PATIENT
  Age: 45 Year
  Sex: Male
  Weight: 80 kg

DRUGS (1)
  1. ESCITALOPRAM (ESCITALOPRAM OXALATE 10MG TAB) [Suspect]
     Active Substance: ESCITALOPRAM OXALATE
     Indication: DEPRESSION
     Route: 048
     Dates: start: 20170809, end: 20200727

REACTIONS (6)
  - Haemorrhage intracranial [None]
  - Blindness [None]
  - Cerebral haematoma [None]
  - Diplopia [None]
  - Eye pain [None]
  - Reversible cerebral vasoconstriction syndrome [None]

NARRATIVE: CASE EVENT DATE: 20200723
